FAERS Safety Report 5147670-0 (Version None)
Quarter: 2006Q4

REPORT INFORMATION
  Report Type: 
  Country: None (occurrence: None)
  Receive Date: 20061106
  Receipt Date: 20061025
  Transmission Date: 20070319
  Serious: Yes (Other)
  Sender: FDA-Public Use
  Company Number: 149188ISR

PATIENT
  Age: 31 Year
  Sex: Female

DRUGS (1)
  1. TRAZODONE HCL [Suspect]
     Indication: ANXIETY
     Dosage: (50 MG)
     Route: 048
     Dates: start: 20060731, end: 20060804

REACTIONS (2)
  - BLOOD INSULIN INCREASED [None]
  - DIABETES MELLITUS INADEQUATE CONTROL [None]
